FAERS Safety Report 5260955-2 (Version None)
Quarter: 2007Q1

REPORT INFORMATION
  Report Type: 
  Country: None (occurrence: None)
  Receive Date: 20070309
  Receipt Date: 20070305
  Transmission Date: 20070707
  Serious: Yes (Other)
  Sender: FDA-Public Use
  Company Number: MY-BRISTOL-MYERS SQUIBB COMPANY-13700810

PATIENT
  Sex: Female

DRUGS (4)
  1. STAVUDINE [Suspect]
     Route: 064
  2. LAMIVUDINE [Suspect]
     Route: 064
  3. NEVIRAPINE [Suspect]
     Route: 064
  4. ZIDOVUDINE [Suspect]
     Route: 042

REACTIONS (4)
  - CONVULSION [None]
  - DEVELOPMENTAL DELAY [None]
  - HYPERLACTACIDAEMIA [None]
  - PREGNANCY [None]
